FAERS Safety Report 4714894-3 (Version None)
Quarter: 2005Q3

REPORT INFORMATION
  Report Type: 
  Country: None (occurrence: None)
  Receive Date: 20050715
  Receipt Date: 20050711
  Transmission Date: 20060218
  Serious: Yes (Death, Hospitalization)
  Sender: FDA-Public Use
  Company Number: PHHO2005JP11031

PATIENT
  Age: 80 Year
  Sex: Female

DRUGS (10)
  1. TENORMIN [Concomitant]
     Indication: HYPERTENSION
  2. ADALAT [Concomitant]
     Indication: HYPERTENSION
  3. THYRADIN [Concomitant]
     Indication: HYPOTHYROIDISM
  4. ZANTAC [Concomitant]
     Indication: GASTRIC ULCER
  5. DOGMATYL [Concomitant]
     Indication: GASTRIC ULCER
  6. FLUITRAN [Concomitant]
  7. ADALAT [Concomitant]
     Indication: HYPERTENSION
  8. DIOVAN [Concomitant]
     Indication: HYPERTENSION
  9. ALDACTONE [Concomitant]
     Indication: OEDEMA
  10. LOCHOL [Suspect]
     Indication: HYPERCHOLESTEROLAEMIA
     Dosage: 20 MG, QD
     Route: 048
     Dates: start: 20001028

REACTIONS (3)
  - LUNG DISORDER [None]
  - LUNG NEOPLASM MALIGNANT [None]
  - RESPIRATORY TRACT INFECTION [None]
